FAERS Safety Report 4593001-4 (Version None)
Quarter: 2005Q1

REPORT INFORMATION
  Report Type: 
  Country: None (occurrence: None)
  Receive Date: 20050125
  Receipt Date: 20041021
  Transmission Date: 20050727
  Serious: No
  Sender: FDA-Public Use
  Company Number: USA040876409

PATIENT
  Age: 73 Year
  Sex: Female
  Weight: 81 kg

DRUGS (16)
  1. FORTEO [Suspect]
     Indication: OSTEOPOROSIS
     Dosage: 20 UG/1 DAY
     Dates: start: 20040701
  2. PREDNISONE [Concomitant]
  3. OSCAL (CALCIUM CARBONATE) [Concomitant]
  4. SLOW-FE (FERROUIS SULFATE EXSICCATED) [Concomitant]
  5. ALLOPURINOL [Concomitant]
  6. POTASSIUM CHLORIDE [Concomitant]
  7. PREVACID [Concomitant]
  8. DIOVAN [Concomitant]
  9. CLONIDINE [Concomitant]
  10. MIONOXIDIL (MINOXIDIL) [Concomitant]
  11. HYDROCHLOROTHIAZIDE [Concomitant]
  12. METHOTREXATE [Concomitant]
  13. KENSYL (PSYLLIUM HYDROPHILIC MUCILLOID) [Concomitant]
  14. ATIVAN [Concomitant]
  15. PAXIL [Concomitant]
  16. AMBIEN [Concomitant]

REACTIONS (6)
  - CONTUSION [None]
  - HOT FLUSH [None]
  - HYPERHIDROSIS [None]
  - LOWER EXTREMITY MASS [None]
  - MUSCLE FATIGUE [None]
  - SCRATCH [None]
